FAERS Safety Report 6079941-8 (Version None)
Quarter: 2009Q1

REPORT INFORMATION
  Report Type: 
  Country: None (occurrence: None)
  Receive Date: 20090217
  Receipt Date: 20090206
  Transmission Date: 20090719
  Serious: Yes (Other)
  Sender: FDA-Public Use
  Company Number: PHHY2008DE26179

PATIENT
  Sex: Male

DRUGS (7)
  1. DIOVAN [Suspect]
     Dosage: 1 DF, QD
     Dates: start: 20070101
  2. TAMSULOSIN HCL [Concomitant]
     Dosage: 1 DF, QD
  3. CONCOR [Concomitant]
     Dosage: 1 DF, QD
  4. ACETYLSALICYLIC ACID SRT [Concomitant]
     Dosage: 1 DF, QD
  5. FLUVASTATIN [Concomitant]
     Dosage: 1 DF, QD
  6. FINASTERIDE [Concomitant]
  7. INSULIN [Concomitant]

REACTIONS (10)
  - ARTHRITIS [None]
  - BLADDER DISORDER [None]
  - BLOOD CREATINE PHOSPHOKINASE INCREASED [None]
  - DIABETIC EYE DISEASE [None]
  - DIABETIC NEUROPATHY [None]
  - EYE IRRITATION [None]
  - EYE PRURITUS [None]
  - MUSCLE DISORDER [None]
  - MUSCLE SPASMS [None]
  - PAIN IN EXTREMITY [None]
